FAERS Safety Report 23574014 (Version 3)
Quarter: 2024Q1

REPORT INFORMATION
  Report Type: Spontaneous
  Country: EG (occurrence: EG)
  Receive Date: 20240228
  Receipt Date: 20240307
  Transmission Date: 20240410
  Serious: Yes (Death, Other)
  Sender: FDA-Public Use
  Company Number: EG-ABBVIE-5656559

PATIENT
  Age: 1 Day
  Weight: 1.25 kg

DRUGS (1)
  1. SURVANTA [Suspect]
     Active Substance: BERACTANT
     Indication: Neonatal respiratory distress syndrome
     Dosage: DOSAGE: 25 MG/ML 25 MG/ML, 2 VIAL EACH VIAL 4 ML?FORM STRENGTH: 4 MILLILITRES
     Route: 007
     Dates: start: 20231216

REACTIONS (3)
  - Pulmonary haemorrhage [Fatal]
  - Seizure [Unknown]
  - Condition aggravated [Fatal]

NARRATIVE: CASE EVENT DATE: 20231217
